FAERS Safety Report 5447588-X (Version None)
Quarter: 2007Q3

REPORT INFORMATION
  Report Type: 
  Country: None (occurrence: None)
  Receive Date: 20070905
  Receipt Date: 20070905
  Transmission Date: 20080115
  Serious: Yes (Life-Threatening, Hospitalization)
  Sender: FDA-Public Use
  Company Number: None

PATIENT
  Sex: Female
  Weight: 68.4932 kg

DRUGS (1)
  1. PROMETHAZINE HCL [Suspect]
     Indication: NAUSEA
     Dosage: 25 MG ONCE IM
     Route: 030
     Dates: start: 20070830, end: 20070830

REACTIONS (2)
  - DELUSION [None]
  - NEUROLEPTIC MALIGNANT SYNDROME [None]
